FAERS Safety Report 10861782 (Version 2)
Quarter: 2015Q1

REPORT INFORMATION
  Report Type: Spontaneous
  Country: US (occurrence: US)
  Receive Date: 20150224
  Receipt Date: 20150304
  Transmission Date: 20150721
  Serious: No
  Sender: FDA-Public Use
  Company Number: US-PFIZER INC-2015068068

PATIENT
  Age: 76 Year
  Sex: Male
  Weight: 91.16 kg

DRUGS (2)
  1. ZYVOX [Suspect]
     Active Substance: LINEZOLID
     Indication: INFECTION
     Dosage: 20 MG
  2. NOVOLOG [Concomitant]
     Active Substance: INSULIN ASPART
     Indication: DIABETES MELLITUS
     Dosage: 20-25 UNITS

REACTIONS (3)
  - Blood glucose decreased [Unknown]
  - Stomatitis [Unknown]
  - Therapeutic response unexpected [Unknown]
